FAERS Safety Report 4555797-7 (Version None)
Quarter: 2005Q1

REPORT INFORMATION
  Report Type: 
  Country: None (occurrence: None)
  Receive Date: 20050118
  Receipt Date: 20040608
  Transmission Date: 20050727
  Serious: Yes (Hospitalization)
  Sender: FDA-Public Use
  Company Number: A001-002-006102

PATIENT
  Age: 94 Year
  Sex: Female
  Weight: 44 kg

DRUGS (12)
  1. ARICEPT [Suspect]
     Indication: DEMENTIA
     Dosage: 10 MG, 1 IN 1 D, ORAL
     Route: 048
     Dates: start: 20031201, end: 20040501
  2. ARICEPT [Suspect]
     Indication: DEMENTIA
     Dosage: 10 MG, 1 IN 1 D, ORAL
     Route: 048
     Dates: start: 20040602, end: 20040605
  3. ARICEPT [Suspect]
     Indication: DEMENTIA
     Dosage: 10 MG, 1 IN 1 D, ORAL
     Route: 048
     Dates: start: 20040607
  4. NAMENDA [Suspect]
     Dosage: ORAL
     Route: 048
     Dates: start: 20040603, end: 20040601
  5. TRENTAL [Concomitant]
  6. PROAMATINE [Concomitant]
  7. PLAVIX [Concomitant]
  8. SENIOR VITAMINS (VITAMINS) [Concomitant]
  9. FISH OIL (FISH OIL) [Concomitant]
  10. CALCLIUM (CALCIUM) [Concomitant]
  11. ASPIRIN [Concomitant]
  12. BUMEX [Concomitant]

REACTIONS (4)
  - BLOOD PRESSURE DECREASED [None]
  - DEHYDRATION [None]
  - FATIGUE [None]
  - MENTAL IMPAIRMENT [None]
